FAERS Safety Report 7621144-7 (Version None)
Quarter: 2011Q3

REPORT INFORMATION
  Report Type: 
  Country: None (occurrence: None)
  Receive Date: 20110719
  Receipt Date: 20110711
  Transmission Date: 20111222
  Serious: Yes (Hospitalization, Other)
  Sender: FDA-Public Use
  Company Number: PHHY2009JP38019

PATIENT
  Sex: Female

DRUGS (7)
  1. KINDAVATE [Concomitant]
     Dosage: UNK
     Route: 061
     Dates: start: 20090623
  2. HYDREA [Concomitant]
     Dosage: UNK
     Route: 048
     Dates: start: 20070316, end: 20070327
  3. TASIGNA [Suspect]
     Indication: CHRONIC MYELOID LEUKAEMIA
     Dosage: 800 MG, UNK
     Route: 048
     Dates: start: 20090414, end: 20090505
  4. TASIGNA [Suspect]
     Dosage: 800 MG PER DAY
     Route: 048
     Dates: start: 20090526
  5. LEVOFLOXACIN [Concomitant]
     Dosage: UNK
     Route: 031
     Dates: start: 20090505, end: 20090602
  6. FLUMETHOLON [Concomitant]
     Dosage: UNK
     Route: 031
     Dates: start: 20090505, end: 20090602
  7. RINDERON -V [Concomitant]
     Dosage: UNK
     Route: 061
     Dates: start: 20090623

REACTIONS (5)
  - BASOPHIL COUNT INCREASED [None]
  - WHITE BLOOD CELL COUNT DECREASED [None]
  - BLEPHARITIS [None]
  - BLOOD BILIRUBIN INCREASED [None]
  - RASH GENERALISED [None]
